FAERS Safety Report 7596141 (Version 2)
Quarter: 2020Q3

REPORT INFORMATION
  Report Type: Report from Study
  Country: JP (occurrence: JP)
  Receive Date: 20100920
  Receipt Date: 20101018
  Transmission Date: 20201105
  Serious: Yes (Hospitalization)
  Sender: FDA-Public Use
  Company Number: JP-WYE-H17398610

PATIENT
  Age: 79 Year
  Sex: Female
  Weight: 55.5 kg

DRUGS (15)
  1. NERATINIB [Suspect]
     Active Substance: NERATINIB
     Route: 048
     Dates: start: 20100629
  2. GLYCINE. [Concomitant]
     Active Substance: GLYCINE
     Indication: PROPHYLAXIS
     Dates: start: 200702
  3. TRIAMCINOLONE ACETONIDE. [Concomitant]
     Active Substance: TRIAMCINOLONE ACETONIDE
     Indication: STOMATITIS
     Dosage: NOT PROVIDED
     Dates: start: 20100823
  4. AMLODIPINE [Concomitant]
     Active Substance: AMLODIPINE BESYLATE
     Indication: HYPERTENSION
     Dates: start: 200710
  5. GOSHAJINKIGAN [Concomitant]
     Indication: NEUROPATHY PERIPHERAL
     Dates: start: 20100406
  6. PYRIDOXAL PHOSPHATE [Concomitant]
     Active Substance: PYRIDOXAL PHOSPHATE
     Indication: NEUROPATHY PERIPHERAL
     Dates: start: 20100406
  7. HYDROCORTISONE. [Concomitant]
     Active Substance: HYDROCORTISONE
     Indication: SEBORRHOEIC DERMATITIS
     Dosage: AS NEEDED, DOSE NOT PROVIDED
     Dates: start: 200702
  8. HEPARIN [Concomitant]
     Active Substance: HEPARIN SODIUM
     Indication: PALMAR-PLANTAR ERYTHRODYSAESTHESIA SYNDROME
     Dosage: AS NEEDED, DOSE NOT PROVIDED
     Dates: start: 20100823
  9. METHYLCOBALAMIN. [Concomitant]
     Active Substance: METHYLCOBALAMIN
     Indication: NEUROPATHY PERIPHERAL
     Dates: start: 20100406
  10. NERATINIB [Suspect]
     Active Substance: NERATINIB
     Indication: BREAST CANCER
     Route: 048
     Dates: start: 20100309, end: 20100628
  11. PIRENOXINE [Concomitant]
     Active Substance: PIRENOXINE
     Indication: CATARACT
     Dosage: 3 TIMES A DAY, DOSE NOT PROVIDED
  12. ALFACALCIDOL [Concomitant]
     Active Substance: ALFACALCIDOL
     Indication: OSTEOPOROSIS
     Dates: start: 200710
  13. ALENDRONATE SODIUM. [Concomitant]
     Active Substance: ALENDRONATE SODIUM
     Indication: OSTEOPOROSIS
     Dates: start: 200708
  14. PACLITAXEL. [Suspect]
     Active Substance: PACLITAXEL
     Indication: BREAST CANCER
     Dosage: NOT PROVIDED
     Route: 042
     Dates: start: 20100309, end: 20100810
  15. KETOPROFEN. [Concomitant]
     Active Substance: KETOPROFEN
     Indication: LIGAMENT SPRAIN
     Dosage: 3 TIMES A DAY, DOSE NOT PROVIDED
     Dates: start: 20100823

REACTIONS (9)
  - Femur fracture [Not Recovered/Not Resolved]
  - Osteoporosis [None]
  - Fall [None]
  - Vomiting [None]
  - Ligament sprain [None]
  - Asthenia [None]
  - Diarrhoea [None]
  - Decreased appetite [None]
  - Fatigue [None]

NARRATIVE: CASE EVENT DATE: 20100908
